FAERS Safety Report 16809515 (Version 1)
Quarter: 2019Q4

REPORT INFORMATION
  Report Type: Spontaneous
  Country: US (occurrence: US)
  Receive Date: 20190915
  Receipt Date: 20190915
  Transmission Date: 20200122
  Serious: Yes (Other)
  Sender: FDA-Public Use
  Company Number: None

PATIENT
  Age: 64 Year
  Sex: Female
  Weight: 57.6 kg

DRUGS (1)
  1. NATURAL OPTHALMICS WOMEN^S TEAR STIMULATION [Suspect]
     Active Substance: HOMEOPATHICS
     Indication: DRY EYE
     Dosage: ?          QUANTITY:2 DROP(S);?
     Route: 047
     Dates: start: 20170130, end: 20190707

REACTIONS (4)
  - Eye discharge [None]
  - Secretion discharge [None]
  - Recalled product administered [None]
  - Product contamination [None]
